FAERS Safety Report 7177176-9 (Version None)
Quarter: 2010Q4

REPORT INFORMATION
  Report Type: 
  Country: None (occurrence: None)
  Receive Date: 20101220
  Receipt Date: 20101208
  Transmission Date: 20110411
  Serious: Yes (Other)
  Sender: FDA-Public Use
  Company Number: US-ROCHE-727299

PATIENT
  Sex: Male
  Weight: 54.4 kg

DRUGS (11)
  1. ACCUTANE [Suspect]
     Indication: ACNE
     Route: 065
     Dates: start: 20010601
  2. ACCUTANE [Suspect]
     Route: 065
     Dates: start: 20010703
  3. ACCUTANE [Suspect]
     Route: 065
     Dates: start: 20010801
  4. ACCUTANE [Suspect]
     Route: 065
     Dates: start: 20010829
  5. ACCUTANE [Suspect]
     Route: 065
     Dates: start: 20010905
  6. ACCUTANE [Suspect]
     Route: 065
     Dates: end: 20011201
  7. ACCUTANE [Suspect]
     Route: 065
     Dates: start: 20020624
  8. ACCUTANE [Suspect]
     Route: 065
     Dates: start: 20020913
  9. ACCUTANE [Suspect]
     Route: 065
     Dates: start: 20021205
  10. ACCUTANE [Suspect]
     Route: 065
     Dates: start: 20030601
  11. ACCUTANE [Suspect]
     Route: 065
     Dates: start: 20030702

REACTIONS (10)
  - ACNE [None]
  - COLITIS ULCERATIVE [None]
  - CROHN'S DISEASE [None]
  - DEPRESSION [None]
  - DRY EYE [None]
  - DRY SKIN [None]
  - GASTROINTESTINAL INJURY [None]
  - GASTROOESOPHAGEAL REFLUX DISEASE [None]
  - LIP DRY [None]
  - PHOTOSENSITIVITY REACTION [None]
